FAERS Safety Report 7251090-2 (Version None)
Quarter: 2011Q1

REPORT INFORMATION
  Report Type: 
  Country: None (occurrence: None)
  Receive Date: 20110128
  Receipt Date: 20110121
  Transmission Date: 20110831
  Serious: Yes (Hospitalization, Other)
  Sender: FDA-Public Use
  Company Number: JP-MERCK-0907USA02460

PATIENT
  Age: 49 Year
  Sex: Male

DRUGS (35)
  1. ZIAGEN [Suspect]
     Indication: HIV INFECTION
     Route: 048
     Dates: start: 20010617, end: 20090427
  2. TRANSAMIN [Concomitant]
     Indication: HAEMOPHILIA
     Route: 048
     Dates: start: 20070403
  3. PREDNISOLONE [Suspect]
     Indication: PERITONITIS
     Route: 048
     Dates: start: 20090213, end: 20090215
  4. PREDNISOLONE [Suspect]
     Route: 048
     Dates: start: 20090302, end: 20090304
  5. PREDNISOLONE [Suspect]
     Route: 048
     Dates: start: 20090615, end: 20090621
  6. FACTOR VIII [Concomitant]
     Route: 041
     Dates: start: 20090507, end: 20090723
  7. DIOVAN [Concomitant]
     Indication: HYPERTENSION
     Route: 048
     Dates: start: 20080317
  8. NORVIR [Suspect]
     Indication: HIV INFECTION
     Route: 048
     Dates: start: 20090512, end: 20090601
  9. PREDNISOLONE [Suspect]
     Route: 048
     Dates: start: 20090608, end: 20090614
  10. BIOFERMIN [Concomitant]
     Indication: CONSTIPATION
     Route: 048
     Dates: start: 20081010
  11. ISENTRESS [Suspect]
     Route: 048
     Dates: start: 20081218, end: 20090101
  12. TRUVADA [Suspect]
     Indication: HIV INFECTION
     Route: 048
     Dates: start: 20090323, end: 20090409
  13. KALETRA [Suspect]
     Indication: HIV INFECTION
     Route: 048
     Dates: start: 20090428, end: 20090501
  14. KALETRA [Suspect]
     Route: 048
     Dates: start: 20090428, end: 20090501
  15. PREZISTA [Suspect]
     Indication: HIV INFECTION
     Route: 048
     Dates: start: 20090512, end: 20090601
  16. PREDNISOLONE [Suspect]
     Route: 048
     Dates: start: 20090308, end: 20090607
  17. PREDNISOLONE [Suspect]
     Route: 048
     Dates: start: 20090703
  18. FACTOR VIII [Concomitant]
     Route: 041
     Dates: start: 20090507, end: 20090723
  19. DEPAS [Concomitant]
     Indication: INSOMNIA
     Route: 048
     Dates: start: 20090407
  20. NATRIX [Concomitant]
     Indication: HYPERTENSION
     Route: 048
  21. PREDNISOLONE [Suspect]
     Route: 048
     Dates: start: 20090305, end: 20090307
  22. NATRIX [Concomitant]
     Route: 048
     Dates: start: 20080506
  23. TRANSAMIN [Concomitant]
     Route: 048
     Dates: start: 20070403
  24. FACTOR VIII [Concomitant]
     Indication: HAEMORRHAGE PROPHYLAXIS
     Route: 041
     Dates: start: 20090119, end: 20090501
  25. ISENTRESS [Suspect]
     Indication: HIV INFECTION
     Route: 048
     Dates: start: 20090116, end: 20090426
  26. VIRAMUNE [Suspect]
     Indication: HIV INFECTION
     Route: 048
     Dates: start: 20011030, end: 20090322
  27. VIRAMUNE [Suspect]
     Route: 048
     Dates: start: 20090410, end: 20090501
  28. PREDNISOLONE [Suspect]
     Route: 048
     Dates: start: 20090629, end: 20090702
  29. FACTOR VIII [Concomitant]
     Indication: HAEMOPHILIA
     Route: 041
     Dates: start: 20090119, end: 20090501
  30. DEPAS [Concomitant]
     Route: 065
  31. TRUVADA [Suspect]
     Route: 048
     Dates: start: 20090707
  32. PREDNISOLONE [Suspect]
     Route: 048
     Dates: start: 20090215, end: 20090218
  33. PREDNISOLONE [Suspect]
     Route: 048
     Dates: start: 20090622, end: 20090628
  34. PEPCID [Concomitant]
     Indication: ABDOMINAL PAIN
     Route: 065
     Dates: start: 20010403
  35. LOPEMIN [Concomitant]
     Indication: DIARRHOEA
     Route: 048
     Dates: start: 20080310, end: 20090506

REACTIONS (8)
  - ABDOMINAL PAIN UPPER [None]
  - DIABETES MELLITUS [None]
  - HEPATITIS [None]
  - STOMATITIS [None]
  - PERITONITIS [None]
  - HAEMORRHAGE [None]
  - DIARRHOEA [None]
  - HAEMORRHAGIC DIATHESIS [None]
